FAERS Safety Report 5502628-4 (Version None)
Quarter: 2007Q4

REPORT INFORMATION
  Report Type: 
  Country: None (occurrence: None)
  Receive Date: 20071031
  Receipt Date: 20071023
  Transmission Date: 20080405
  Serious: Yes (Hospitalization)
  Sender: FDA-Public Use
  Company Number: US-JNJFOC-20071006331

PATIENT
  Sex: Male

DRUGS (5)
  1. DURAGESIC-100 [Suspect]
     Indication: ARTHRITIS
     Route: 062
  2. CELEBREX [Concomitant]
     Indication: ARTHRITIS
     Route: 048
  3. TIZANIDINE HCL [Concomitant]
     Indication: MUSCLE SPASMS
     Route: 048
  4. ALTACE [Concomitant]
     Indication: HYPERTENSION
     Route: 048
  5. BLOOD PRESSURE MEDICATION [Concomitant]
     Indication: BLOOD PRESSURE
     Route: 048

REACTIONS (4)
  - BLOOD CHOLESTEROL INCREASED [None]
  - CORONARY ARTERY DISEASE [None]
  - INAPPROPRIATE SCHEDULE OF DRUG ADMINISTRATION [None]
  - MUSCLE TWITCHING [None]
